FAERS Safety Report 23738657 (Version 2)
Quarter: 2024Q2

REPORT INFORMATION
  Report Type: Spontaneous
  Country: US (occurrence: US)
  Receive Date: 20240412
  Receipt Date: 20240625
  Transmission Date: 20240716
  Serious: No
  Sender: FDA-Public Use
  Company Number: US-SA-SAC20240405000591

PATIENT
  Sex: Female
  Weight: 81.6 kg

DRUGS (2)
  1. DUPIXENT [Suspect]
     Active Substance: DUPILUMAB
     Indication: Dermatitis atopic
     Dosage: 300 MG, QOW
     Route: 058
  2. ZYRTEC [Concomitant]
     Active Substance: CETIRIZINE HYDROCHLORIDE
     Dosage: UNK

REACTIONS (8)
  - Irritability [Not Recovered/Not Resolved]
  - Fatigue [Not Recovered/Not Resolved]
  - Eyelids pruritus [Recovering/Resolving]
  - Erythema of eyelid [Recovering/Resolving]
  - Swelling of eyelid [Recovering/Resolving]
  - Vision blurred [Recovering/Resolving]
  - Blepharitis [Recovering/Resolving]
  - Dermatitis atopic [Not Recovered/Not Resolved]
